FAERS Safety Report 25063511 (Version 1)
Quarter: 2025Q1

REPORT INFORMATION
  Report Type: Spontaneous
  Country: US (occurrence: None)
  Receive Date: 20250310
  Receipt Date: 20250310
  Transmission Date: 20250409
  Serious: No
  Sender: FDA-CTU
  Company Number: None

PATIENT
  Age: 74 Year
  Sex: Male

DRUGS (1)
  1. VANCOMYCIN HYDROCHLORIDE [Suspect]
     Active Substance: VANCOMYCIN HYDROCHLORIDE

REACTIONS (5)
  - Cerebral haemorrhage [None]
  - Aspartate aminotransferase increased [None]
  - Alanine aminotransferase increased [None]
  - Liver injury [None]
  - Eosinophilia [None]

NARRATIVE: CASE EVENT DATE: 20241002
